FAERS Safety Report 6699800-7 (Version None)
Quarter: 2010Q2

REPORT INFORMATION
  Report Type: 
  Country: None (occurrence: None)
  Receive Date: 20100428
  Receipt Date: 20091013
  Transmission Date: 20101027
  Serious: No
  Sender: FDA-Public Use
  Company Number: A0829312A

PATIENT
  Age: 69 Year
  Sex: Male
  Weight: 65 kg

DRUGS (3)
  1. LUXIQ [Suspect]
     Route: 061
     Dates: start: 20081101, end: 20090101
  2. LUXIQ [Suspect]
     Route: 061
     Dates: start: 20081101, end: 20090101
  3. LUXIQ [Suspect]
     Route: 061
     Dates: start: 20081101, end: 20090101

REACTIONS (2)
  - INAPPROPRIATE SCHEDULE OF DRUG ADMINISTRATION [None]
  - OFF LABEL USE [None]
